FAERS Safety Report 9961341 (Version 2)
Quarter: 2014Q1

REPORT INFORMATION
  Report Type: Spontaneous
  Country: DE (occurrence: DE)
  Receive Date: 20140305
  Receipt Date: 20140305
  Transmission Date: 20141002
  Serious: Yes (Hospitalization)
  Sender: FDA-Public Use
  Company Number: DE-JNJFOC-20140112829

PATIENT
  Age: 71 Year
  Sex: Female

DRUGS (4)
  1. RISPERDAL [Suspect]
     Indication: DEPRESSION
     Dosage: 1MG - 0 - 1MG
     Route: 048
     Dates: start: 201308
  2. VENLAFAXINE [Suspect]
     Indication: DEPRESSION
     Dosage: 225 MG - 0 - 0
     Route: 048
     Dates: start: 2012
  3. L THYROXINE [Concomitant]
     Indication: HYPOTHYROIDISM
     Dosage: 125 MG-0-0
     Route: 048
  4. PANTOPRAZOLE [Concomitant]
     Indication: GASTROINTESTINAL DISORDER THERAPY
     Dosage: 20 MG-0-0
     Route: 048

REACTIONS (3)
  - Alopecia [Not Recovered/Not Resolved]
  - Psychotic disorder [Unknown]
  - Off label use [Unknown]
